FAERS Safety Report 19679879 (Version 2)
Quarter: 2021Q4

REPORT INFORMATION
  Report Type: Spontaneous
  Country: JP (occurrence: JP)
  Receive Date: 20210809
  Receipt Date: 20211009
  Transmission Date: 20220303
  Serious: Yes (Hospitalization)
  Sender: FDA-Public Use
  Company Number: JP-BAYER-2021-186871

PATIENT
  Age: 79 Year
  Sex: Male
  Weight: 84.3 kg

DRUGS (3)
  1. XARELTO [Suspect]
     Active Substance: RIVAROXABAN
     Indication: Atrial fibrillation
     Dosage: 15 MG, QD
     Route: 048
     Dates: end: 20210114
  2. XARELTO [Suspect]
     Active Substance: RIVAROXABAN
     Dosage: UNK
     Route: 048
     Dates: end: 20210215
  3. XARELTO [Suspect]
     Active Substance: RIVAROXABAN
     Dosage: UNK
     Route: 048
     Dates: start: 20210318, end: 20210326

REACTIONS (4)
  - Henoch-Schonlein purpura [Recovered/Resolved]
  - Purpura [Recovered/Resolved]
  - Peripheral swelling [Recovered/Resolved]
  - Rash [Recovered/Resolved]

NARRATIVE: CASE EVENT DATE: 20210101
